FAERS Safety Report 23081323 (Version 1)
Quarter: 2023Q4

REPORT INFORMATION
  Report Type: Spontaneous
  Country: GB (occurrence: GB)
  Receive Date: 20231018
  Receipt Date: 20231018
  Transmission Date: 20240109
  Serious: Yes (Hospitalization, Other)
  Sender: FDA-Public Use
  Company Number: GB-HIKMA PHARMACEUTICALS USA INC.-GB-H14001-23-63888

PATIENT
  Age: 48 Year
  Sex: Female
  Weight: 86 kg

DRUGS (2)
  1. CARBOPLATIN [Suspect]
     Active Substance: CARBOPLATIN
     Indication: Anal squamous cell carcinoma
     Dosage: UNK (AUC 5, ON DAY 1 OF EACH 28-DAY CYCLE)
     Route: 042
     Dates: start: 20220708
  2. PACLITAXEL [Suspect]
     Active Substance: PACLITAXEL
     Indication: Anal squamous cell carcinoma
     Dosage: 80 MG/M2 (DAYS 1, 8, AND 15 OF EACH 28-DAY CYCLE)
     Route: 042
     Dates: start: 20220708, end: 20220715

REACTIONS (9)
  - Neutropenic sepsis [Recovered/Resolved]
  - Influenza like illness [Recovered/Resolved]
  - Acute kidney injury [Unknown]
  - Night sweats [Unknown]
  - Dysuria [Unknown]
  - Abdominal pain upper [Unknown]
  - Chills [Unknown]
  - Infection [Unknown]
  - Pyrexia [Unknown]

NARRATIVE: CASE EVENT DATE: 20220722
